FAERS Safety Report 10573265 (Version 1)
Quarter: 2014Q4

REPORT INFORMATION
  Report Type: Spontaneous
  Country: US (occurrence: None)
  Receive Date: 20141030
  Receipt Date: 20141030
  Transmission Date: 20150529
  Serious: Yes (Life-Threatening, Hospitalization)
  Sender: FDA-Public Use
  Company Number: PHHY2013US134375

PATIENT
  Age: 65 Year
  Sex: Female

DRUGS (18)
  1. GRANISETRON [Concomitant]
     Active Substance: GRANISETRON
  2. NADROPARIN CALCIUM [Concomitant]
     Active Substance: NADROPARIN CALCIUM
  3. DEXAMETHASONE. [Concomitant]
     Active Substance: DEXAMETHASONE
  4. INDAPAMIDE. [Concomitant]
     Active Substance: INDAPAMIDE
  5. MAGNESIUM SULFATE. [Concomitant]
     Active Substance: MAGNESIUM SULFATE
  6. ASCORBIC ACID. [Concomitant]
     Active Substance: ASCORBIC ACID
  7. MENADIONE SODIUM BISULFITE [Concomitant]
     Active Substance: MENADIONE
  8. DROTAVERINE [Concomitant]
     Active Substance: DROTAVERINE
  9. 5 FLUORO URACIL [Suspect]
     Active Substance: FLUOROURACIL
     Indication: METASTATIC GASTRIC CANCER
     Route: 042
     Dates: start: 20121121, end: 20121126
  10. LEVOTHYROXINE SODIUM. [Concomitant]
     Active Substance: LEVOTHYROXINE SODIUM
  11. METHYLETHYLPIRIDINOL SUCCINATE [Concomitant]
  12. VOLUVEN (HETASTARCH, SODIUM CHLORIDE) [Concomitant]
  13. ZOMETA [Suspect]
     Active Substance: ZOLEDRONIC ACID
     Indication: METASTASES TO BONE
     Dates: start: 20121117, end: 20121117
  14. GLUCOSE [Concomitant]
     Active Substance: DEXTROSE
  15. NEOTON (PHOSPHOCREATINE SODIUM) [Concomitant]
  16. CISPLATIN (CISPLATIN) [Suspect]
     Active Substance: CISPLATIN
     Indication: METASTATIC GASTRIC CANCER
     Route: 042
     Dates: start: 20121121, end: 20121121
  17. KETOROLAC [Concomitant]
     Active Substance: KETOROLAC\KETOROLAC TROMETHAMINE
  18. ACETAZOLAMIDE. [Concomitant]
     Active Substance: ACETAZOLAMIDE

REACTIONS (7)
  - Loss of consciousness [None]
  - Vomiting [None]
  - Hyponatraemia [None]
  - Hypokalaemia [None]
  - Abdominal pain [None]
  - Fatigue [None]
  - Hypocalcaemia [None]

NARRATIVE: CASE EVENT DATE: 20121126
